FAERS Safety Report 8645378 (Version 2)
Quarter: 2012Q4

REPORT INFORMATION
  Report Type: Spontaneous
  Country: US (occurrence: None)
  Receive Date: 20120620
  Receipt Date: 20120911
  Transmission Date: 20130627
  Serious: Yes (Hospitalization)
  Sender: FDA-Public Use
  Company Number: 2012HGS-003733

PATIENT
  Age: 45 Year
  Sex: Female
  Weight: 195 kg

DRUGS (9)
  1. BENLYSTA [Suspect]
     Indication: SYSTEMIC LUPUS ERYTHEMATOSUS
     Dosage: 1 IN 28 D, INTRAVENOUS DRIP
     Route: 041
     Dates: start: 20120530
  2. DOXEPIN HYDROCHLORIDE [Concomitant]
  3. ZYRTEC [Concomitant]
  4. ZANTAC [Concomitant]
  5. MULTIVITAMINS (MULTIVITAMINS)(ERGOCALCIFEROL, ASCORBIC ACID, FOLIC ACID, THIAMINE HYDROCHLORIDE, RE [Concomitant]
  6. BENADRYL (DIPHENHYDRAMINE HYDROCHLORIDE)(DIPHENHYDRAMINE HYDROCHLORIDE) [Concomitant]
  7. RESTASIS (CICLOSPORIN)(CICLOSPORIN) [Concomitant]
  8. VIVELLE PATCH (ESTRADIOL)(ESTRADIOL) [Concomitant]
  9. METHOTREXATE (METHOTREXATE) [Concomitant]

REACTIONS (9)
  - Hypersensitivity [None]
  - Pyrexia [None]
  - Chills [None]
  - Urticaria [None]
  - Nausea [None]
  - Dizziness [None]
  - Swelling face [None]
  - Dehydration [None]
  - Rash [None]
